FAERS Safety Report 11355120 (Version 1)
Quarter: 2015Q3

REPORT INFORMATION
  Report Type: Spontaneous
  Country: US (occurrence: US)
  Receive Date: 20150807
  Receipt Date: 20150807
  Transmission Date: 20151125
  Serious: No
  Sender: FDA-Public Use
  Company Number: US-JNJFOC-20150412842

PATIENT
  Age: 33 Year
  Sex: Male
  Weight: 90.72 kg

DRUGS (1)
  1. RISPERDAL [Suspect]
     Active Substance: RISPERIDONE
     Indication: SCHIZOAFFECTIVE DISORDER
     Route: 048
     Dates: start: 201302, end: 201303

REACTIONS (9)
  - Weight increased [Recovering/Resolving]
  - Hallucination, auditory [Recovered/Resolved]
  - Treatment noncompliance [Unknown]
  - Obsessive-compulsive disorder [Recovered/Resolved]
  - Mental impairment [Recovered/Resolved]
  - Anxiety [Recovered/Resolved]
  - Apathy [Recovered/Resolved]
  - Akathisia [Recovered/Resolved]
  - Thought insertion [Recovered/Resolved]

NARRATIVE: CASE EVENT DATE: 201302
